FAERS Safety Report 6862568-5 (Version None)
Quarter: 2010Q3

REPORT INFORMATION
  Report Type: 
  Country: None (occurrence: None)
  Receive Date: 20100719
  Receipt Date: 20100709
  Transmission Date: 20110219
  Serious: Yes (Hospitalization)
  Sender: FDA-Public Use
  Company Number: 2010SP027324

PATIENT
  Age: 46 Year
  Sex: Male

DRUGS (11)
  1. REFLEX (MIRTAZINE /01293201/) [Suspect]
     Indication: DEPRESSION
     Dosage: PO; 30 MG;QD;PO
     Route: 048
     Dates: start: 20100330, end: 20100423
  2. REFLEX (MIRTAZINE /01293201/) [Suspect]
     Indication: DEPRESSION
     Dosage: PO; 30 MG;QD;PO
     Route: 048
     Dates: start: 20100301
  3. QUETIAPINE FUMARATE [Concomitant]
  4. PAROXETINE HYDROCHLORIDE [Concomitant]
  5. AMOXAPINE [Concomitant]
  6. ZOLPIDEM TARTRATE [Concomitant]
  7. QUETIAPINE FUMARATE [Concomitant]
  8. TRIAZOLAM [Concomitant]
  9. BROTIZOLAM [Concomitant]
  10. SERTRALINE HYDROCHLORIDE [Concomitant]
  11. CHLORPROMAZINE HCL [Concomitant]

REACTIONS (4)
  - CONDITION AGGRAVATED [None]
  - OEDEMA PERIPHERAL [None]
  - PROTEIN-LOSING GASTROENTEROPATHY [None]
  - WEIGHT INCREASED [None]
